FAERS Safety Report 19057728 (Version 10)
Quarter: 2022Q4

REPORT INFORMATION
  Report Type: Spontaneous
  Country: US (occurrence: US)
  Receive Date: 20210325
  Receipt Date: 20221220
  Transmission Date: 20230112
  Serious: Yes (Hospitalization, Other)
  Sender: FDA-Public Use
  Company Number: US-PFIZER INC-2021314178

PATIENT
  Age: 68 Year
  Sex: Female
  Weight: 108.86 kg

DRUGS (12)
  1. PROTONIX [Suspect]
     Active Substance: PANTOPRAZOLE SODIUM
     Indication: Gastrooesophageal reflux disease
     Dosage: 40 MG, 1X/DAY (MORNING)
     Dates: start: 1989
  2. DILANTIN [Concomitant]
     Active Substance: PHENYTOIN
     Indication: Seizure
     Dosage: 4 CSPSULES, 1X/DAY (100 MG)
     Dates: start: 1986
  3. LEVOTHYROXINE [Concomitant]
     Active Substance: LEVOTHYROXINE
     Indication: Hypothyroidism
     Dosage: 200 UG, 1X/DAY
  4. LIPITOR [Concomitant]
     Active Substance: ATORVASTATIN CALCIUM
     Indication: Blood cholesterol
     Dosage: 40 MG, 1X/DAY (ONCE A DAY IN THE EVENING)
  5. LOSARTAN [Concomitant]
     Active Substance: LOSARTAN
     Indication: Hypertension
     Dosage: 500 MG
  6. PIOGLITAZONE [Concomitant]
     Active Substance: PIOGLITAZONE
     Indication: Type 2 diabetes mellitus
     Dosage: 30 MG, 1X/DAY
     Dates: start: 2020
  7. GABAPENTIN [Concomitant]
     Active Substance: GABAPENTIN
     Indication: Dizziness
     Dosage: 300 MG, 2X/DAY
  8. BAYER ASPIRIN [Concomitant]
     Active Substance: ASPIRIN
     Dosage: 81 MG, 1X/DAY (ONCE A DAY AT NIGHT)
  9. FISH OIL\OMEGA-3 FATTY ACIDS [Concomitant]
     Active Substance: FISH OIL\OMEGA-3 FATTY ACIDS
     Dosage: 1200 MG, 2X/DAY
  10. VITAMIN D3 [Concomitant]
     Active Substance: CHOLECALCIFEROL
     Dosage: 500 IU, 1X/DAY
  11. BIOTIN [Concomitant]
     Active Substance: BIOTIN
     Dosage: 1000 UG, 1X/DAY
  12. LACTOBACILLUS ACIDOPHILUS [Concomitant]
     Active Substance: LACTOBACILLUS ACIDOPHILUS
     Indication: Dyspepsia
     Dosage: UNK, 2X/DAY (1 BILLION CFU CELGAP, TWO DAILY)

REACTIONS (10)
  - Hip fracture [Unknown]
  - Fall [Unknown]
  - Gait inability [Unknown]
  - Drug ineffective [Unknown]
  - Weight increased [Unknown]
  - Pain [Unknown]
  - Dizziness [Unknown]
  - Face injury [Unknown]
  - Contusion [Unknown]
  - Swelling face [Unknown]

NARRATIVE: CASE EVENT DATE: 20200622
